FAERS Safety Report 9268190 (Version 1)
Quarter: 2013Q2

REPORT INFORMATION
  Report Type: Spontaneous
  Country: US (occurrence: US)
  Receive Date: 20130502
  Receipt Date: 20130502
  Transmission Date: 20140414
  Serious: Yes (Other)
  Sender: FDA-Public Use
  Company Number: US-PFIZER INC-2013133417

PATIENT
  Sex: Male

DRUGS (3)
  1. BENEFIX [Suspect]
     Indication: HAEMOPHILIA
     Dosage: 4000 IU, WEEKLY
  2. HYDROCODONE W/ACETAMINOPHEN [Suspect]
     Indication: GINGIVAL PAIN
     Dosage: 10/365MG,EVERY 4 TO 5 HOURS
     Dates: start: 20130419, end: 20130420
  3. HYDROCODONE W/ACETAMINOPHEN [Suspect]
     Dosage: 10/365MG, EVERY 4 TO 5 HOURS
     Dates: start: 20130425

REACTIONS (5)
  - Tooth infection [Unknown]
  - Gingival bleeding [Not Recovered/Not Resolved]
  - Gingival pain [Unknown]
  - Local swelling [Not Recovered/Not Resolved]
  - Pain in extremity [Not Recovered/Not Resolved]
